FAERS Safety Report 10147154 (Version 1)
Quarter: 2014Q2

REPORT INFORMATION
  Report Type: Spontaneous
  Country: US (occurrence: US)
  Receive Date: 20140501
  Receipt Date: 20140501
  Transmission Date: 20141212
  Serious: Yes (Other)
  Sender: FDA-Public Use
  Company Number: US-BAXTER-2014BAX020340

PATIENT
  Age: 67 Year
  Sex: Male

DRUGS (2)
  1. DOPAMINE HYDROCHLORIDE AND 5% DEXTROSE INJECTION, USP [Suspect]
     Indication: CARDIOGENIC SHOCK
     Dosage: INCREASING DOSES
     Route: 065
  2. NOREPINEPHRINE [Suspect]
     Indication: CARDIOGENIC SHOCK
     Dosage: INCREASING DOSES
     Route: 065

REACTIONS (1)
  - Drug ineffective [Not Recovered/Not Resolved]
